FAERS Safety Report 22396504 (Version 1)
Quarter: 2023Q2

REPORT INFORMATION
  Report Type: Spontaneous
  Country: US (occurrence: US)
  Receive Date: 20230601
  Receipt Date: 20230601
  Transmission Date: 20230722
  Serious: No
  Sender: FDA-Public Use
  Company Number: US-APIL-2312726US

PATIENT
  Sex: Female

DRUGS (1)
  1. LINZESS [Suspect]
     Active Substance: LINACLOTIDE
     Indication: Constipation
     Dosage: UNKNOWN
     Route: 048

REACTIONS (4)
  - Abdominal discomfort [Unknown]
  - Dehydration [Unknown]
  - Headache [Unknown]
  - Diarrhoea [Unknown]
